FAERS Safety Report 4543277-4 (Version None)
Quarter: 2004Q4

REPORT INFORMATION
  Report Type: 
  Country: None (occurrence: None)
  Receive Date: 20041229
  Receipt Date: 20041214
  Transmission Date: 20050328
  Serious: Yes (Hospitalization)
  Sender: FDA-Public Use
  Company Number: DE-2004-036662

PATIENT
  Age: 36 Year
  Sex: Female

DRUGS (1)
  1. BETAFERON (INTERFERON BETA-1B) INJECTION, 250 UG [Suspect]
     Dosage: SUBCUTANEOUS
     Route: 058
     Dates: start: 20001001

REACTIONS (1)
  - THROMBOSIS [None]
